FAERS Safety Report 10695473 (Version 2)
Quarter: 2015Q1

REPORT INFORMATION
  Report Type: Report from Study
  Country: AR (occurrence: AR)
  Receive Date: 20150107
  Receipt Date: 20150107
  Transmission Date: 20150721
  Serious: Yes (Hospitalization)
  Sender: FDA-Public Use
  Company Number: PHHY2014AR165071

PATIENT
  Age: 86 Year
  Sex: Female

DRUGS (1)
  1. EXFORGE [Suspect]
     Active Substance: AMLODIPINE BESYLATE\VALSARTAN
     Indication: BLOOD PRESSURE INCREASED
     Dosage: 0.5 DF, BID (0.5 TABLET AT MORNING AND 0.5 TABLET AT NIGHT)
     Route: 048

REACTIONS (5)
  - Wrong technique in drug usage process [Unknown]
  - Bone fissure [Recovering/Resolving]
  - Off label use [Unknown]
  - Memory impairment [Recovered/Resolved]
  - Fall [Unknown]

NARRATIVE: CASE EVENT DATE: 201412
